FAERS Safety Report 12683784 (Version 3)
Quarter: 2016Q3

REPORT INFORMATION
  Report Type: Report from Study
  Country: EC (occurrence: EC)
  Receive Date: 20160825
  Receipt Date: 20160916
  Transmission Date: 20161109
  Serious: Yes (Death, Hospitalization)
  Sender: FDA-Public Use
  Company Number: PHHY2016EC116077

PATIENT
  Age: 67 Year
  Sex: Male

DRUGS (1)
  1. TASIGNA [Suspect]
     Active Substance: NILOTINIB
     Indication: CHRONIC MYELOID LEUKAEMIA
     Dosage: 200 MG, BID
     Route: 048
     Dates: start: 20160608, end: 20160823

REACTIONS (15)
  - Blood pressure increased [Fatal]
  - Blood pressure decreased [Fatal]
  - Nausea [Not Recovered/Not Resolved]
  - Spleen disorder [Fatal]
  - Discomfort [Not Recovered/Not Resolved]
  - Cardiac arrest [Fatal]
  - Headache [Not Recovered/Not Resolved]
  - Malaise [Unknown]
  - Chronic myeloid leukaemia [Fatal]
  - Abdominal pain [Fatal]
  - Dyspnoea [Unknown]
  - Pyrexia [Fatal]
  - Rash macular [Not Recovered/Not Resolved]
  - Abdominal distension [Not Recovered/Not Resolved]
  - Abdominal pain upper [Not Recovered/Not Resolved]

NARRATIVE: CASE EVENT DATE: 20160615
